FAERS Safety Report 8436925-X (Version None)
Quarter: 2012Q2

REPORT INFORMATION
  Report Type: 
  Country: None (occurrence: None)
  Receive Date: 20120614
  Receipt Date: 20120125
  Transmission Date: 20120825
  Serious: No
  Sender: FDA-Public Use
  Company Number: US-AMGEN-USASP2012005287

PATIENT

DRUGS (3)
  1. ARANESP [Suspect]
     Dosage: 140 MUG, UNK
  2. ARANESP [Suspect]
     Indication: MYELODYSPLASTIC SYNDROME
     Dosage: 100 MUG, UNK
  3. ARANESP [Suspect]
     Dosage: 125 MUG, UNK

REACTIONS (1)
  - DRUG INEFFECTIVE [None]
